FAERS Safety Report 9177202 (Version 1)
Quarter: 2013Q1

REPORT INFORMATION
  Report Type: Spontaneous
  Country: CA (occurrence: CA)
  Receive Date: 20130321
  Receipt Date: 20130321
  Transmission Date: 20140127
  Serious: Yes (Hospitalization)
  Sender: FDA-Public Use
  Company Number: CA-NOVOPROD-373034

PATIENT
  Sex: Female

DRUGS (1)
  1. NOVOLIN [Suspect]
     Indication: PRODUCT USED FOR UNKNOWN INDICATION
     Dosage: UNK
     Route: 058

REACTIONS (4)
  - Muscle spasms [Unknown]
  - Abdominal distension [Unknown]
  - Syncope [Unknown]
  - Anxiety [None]
